FAERS Safety Report 5478338-9 (Version None)
Quarter: 2007Q4

REPORT INFORMATION
  Report Type: 
  Country: None (occurrence: None)
  Receive Date: 20071005
  Receipt Date: 20071001
  Transmission Date: 20080405
  Serious: Yes (Death, Life-Threatening, Hospitalization, Disabling, Other)
  Sender: FDA-Public Use
  Company Number: A0673476A

PATIENT
  Age: 95 Year
  Sex: Female
  Weight: 45.5 kg

DRUGS (9)
  1. WELLBUTRIN [Suspect]
     Indication: DEPRESSION
     Dosage: 100MG TWICE PER DAY
     Route: 048
  2. FLOVENT [Suspect]
     Indication: LUNG DISORDER
     Dosage: 2PUFF TWICE PER DAY
     Route: 055
  3. ALBUTEROL [Concomitant]
     Dosage: 2PUFF AS REQUIRED
     Route: 055
  4. LISINOPRIL [Concomitant]
     Dosage: 40MG PER DAY
     Route: 048
  5. MIRALAX [Concomitant]
     Dosage: 17MG IN THE MORNING
     Route: 048
  6. SYNTHROID [Concomitant]
     Dosage: .15MG PER DAY
     Route: 048
  7. POTASSIUM CHLORIDE [Concomitant]
     Dosage: 10MEQ TWICE PER DAY
     Route: 048
  8. OMEPRAZOLE [Concomitant]
     Dosage: 20MG TWICE PER DAY
     Route: 048
  9. OXYCODONE HYDROCHLORIDE [Concomitant]
     Indication: PAIN
     Route: 048

REACTIONS (3)
  - BRONCHIECTASIS [None]
  - DEATH [None]
  - PNEUMONIA [None]
